FAERS Safety Report 8262971-5 (Version None)
Quarter: 2012Q1

REPORT INFORMATION
  Report Type: 
  Country: None (occurrence: None)
  Receive Date: 20120327
  Receipt Date: 20110429
  Transmission Date: 20120608
  Serious: Yes (Other)
  Sender: FDA-Public Use
  Company Number: PHHY2011US31905

PATIENT
  Age: 70 Year
  Sex: Male

DRUGS (3)
  1. GLEEVEC [Suspect]
     Indication: CHRONIC MYELOID LEUKAEMIA
     Dosage: 600 MG, DAILY, ORAL
     Route: 048
     Dates: start: 20010618
  2. GLEEVEC [Suspect]
     Indication: CHRONIC MYELOID LEUKAEMIA
     Dosage: 600 MG, DAILY, ORAL
     Route: 048
     Dates: start: 20110325
  3. ALLOPURINOL (ALLOPPURINOL) [Concomitant]

REACTIONS (7)
  - GENE MUTATION IDENTIFICATION TEST POSITIVE [None]
  - PAIN IN EXTREMITY [None]
  - BLOOD CREATININE INCREASED [None]
  - NO THERAPEUTIC RESPONSE [None]
  - BLOOD URIC ACID INCREASED [None]
  - MUSCULOSKELETAL PAIN [None]
  - HYPERURICAEMIA [None]
